FAERS Safety Report 13951834 (Version 1)
Quarter: 2017Q3

REPORT INFORMATION
  Report Type: Other
  Country: GB (occurrence: US)
  Receive Date: 20170908
  Receipt Date: 20170908
  Transmission Date: 20171128
  Serious: Yes (Death, Life-Threatening, Other)
  Sender: FDA-Public Use
  Company Number: US-INTERNATIONAL MEDICATION SYSTEMS, LIMITED-2025805

PATIENT
  Age: 31 Year
  Sex: Female

DRUGS (2)
  1. BUPROPION EXTENDED-RELEASE [Concomitant]
     Active Substance: BUPROPION HYDROCHLORIDE
     Route: 048
  2. SODIUM HYDROGEN CARBONATE [Suspect]
     Active Substance: SODIUM BICARBONATE
     Indication: ELECTROCARDIOGRAM QRS COMPLEX PROLONGED

REACTIONS (2)
  - Death [Fatal]
  - Drug ineffective [Fatal]
